FAERS Safety Report 6447942-3 (Version None)
Quarter: 2009Q4

REPORT INFORMATION
  Report Type: 
  Country: None (occurrence: None)
  Receive Date: 20091120
  Receipt Date: 20091109
  Transmission Date: 20100525
  Serious: Yes (Other)
  Sender: FDA-Public Use
  Company Number: US-RB-025411-09

PATIENT
  Age: 26 Year
  Sex: Female

DRUGS (1)
  1. MUCINEX [Suspect]
     Indication: NASAL CONGESTION
     Route: 048
     Dates: start: 20090312

REACTIONS (5)
  - DYSPNOEA [None]
  - FOREIGN BODY [None]
  - OESOPHAGEAL RUPTURE [None]
  - OESOPHAGITIS [None]
  - PRODUCT SIZE ISSUE [None]
